FAERS Safety Report 18331627 (Version 7)
Quarter: 2022Q3

REPORT INFORMATION
  Report Type: Spontaneous
  Country: CA (occurrence: CA)
  Receive Date: 20200930
  Receipt Date: 20220802
  Transmission Date: 20221027
  Serious: Yes (Other)
  Sender: FDA-Public Use
  Company Number: CA-JNJFOC-20200943504

PATIENT
  Age: 39 Year
  Sex: Male
  Weight: 82 kg

DRUGS (21)
  1. INFLIXIMAB [Suspect]
     Active Substance: INFLIXIMAB
     Indication: Colitis ulcerative
     Route: 041
  2. INFLIXIMAB [Suspect]
     Active Substance: INFLIXIMAB
     Indication: Crohn^s disease
     Route: 041
  3. INFLIXIMAB [Suspect]
     Active Substance: INFLIXIMAB
     Route: 041
  4. INFLIXIMAB [Suspect]
     Active Substance: INFLIXIMAB
     Indication: Crohn^s disease
     Route: 042
  5. INFLIXIMAB [Suspect]
     Active Substance: INFLIXIMAB
     Indication: Colitis ulcerative
     Route: 042
  6. ENTYVIO [Suspect]
     Active Substance: VEDOLIZUMAB
     Indication: Crohn^s disease
     Route: 042
  7. ENTYVIO [Suspect]
     Active Substance: VEDOLIZUMAB
     Route: 042
  8. ENTYVIO [Suspect]
     Active Substance: VEDOLIZUMAB
     Route: 042
  9. PREDNISONE [Concomitant]
     Active Substance: PREDNISONE
     Indication: Product used for unknown indication
     Route: 042
  10. PREDNISONE [Concomitant]
     Active Substance: PREDNISONE
     Route: 065
  11. MESALAMINE [Concomitant]
     Active Substance: MESALAMINE
  12. URSODIOL [Concomitant]
     Active Substance: URSODIOL
     Indication: Cholangitis sclerosing
  13. VITAMIN D                          /00107901/ [Concomitant]
  14. ACETAMINOPHEN [Concomitant]
     Active Substance: ACETAMINOPHEN
     Route: 065
  15. ENTOCORT [Concomitant]
     Active Substance: BUDESONIDE
     Route: 065
  16. AZATHIOPRINE [Concomitant]
     Active Substance: AZATHIOPRINE
     Route: 065
  17. CORTIMENT                          /00028601/ [Concomitant]
     Route: 065
  18. FLAGYL [Concomitant]
     Active Substance: METRONIDAZOLE\METRONIDAZOLE HYDROCHLORIDE
     Route: 065
  19. METOPROLOL [Concomitant]
     Active Substance: METOPROLOL
     Route: 065
  20. TRAMADOL [Concomitant]
     Active Substance: TRAMADOL
     Route: 065
  21. HYDROCORTISONE [Concomitant]
     Active Substance: HYDROCORTISONE

REACTIONS (24)
  - Haemorrhage [Not Recovered/Not Resolved]
  - Eye swelling [Recovered/Resolved]
  - Intentional product use issue [Unknown]
  - Incorrect dose administered [Unknown]
  - Off label use [Not Recovered/Not Resolved]
  - Product use issue [Unknown]
  - Drug level above therapeutic [Unknown]
  - Pruritus [Recovered/Resolved]
  - Drug hypersensitivity [Recovered/Resolved]
  - Urticaria [Recovered/Resolved]
  - Arthralgia [Recovered/Resolved]
  - Condition aggravated [Recovered/Resolved]
  - Drug specific antibody present [Recovered/Resolved]
  - Herpes simplex test positive [Recovered/Resolved]
  - Blood pressure fluctuation [Recovered/Resolved]
  - Cytomegalovirus test positive [Recovered/Resolved]
  - Fatigue [Unknown]
  - Inappropriate schedule of product administration [Recovered/Resolved]
  - Faecal calprotectin increased [Not Recovered/Not Resolved]
  - Therapeutic product effect incomplete [Not Recovered/Not Resolved]
  - Headache [Not Recovered/Not Resolved]
  - Drug level decreased [Recovered/Resolved]
  - Diarrhoea [Not Recovered/Not Resolved]
  - Drug ineffective [Not Recovered/Not Resolved]
